FAERS Safety Report 7510729-4 (Version None)
Quarter: 2011Q2

REPORT INFORMATION
  Report Type: 
  Country: None (occurrence: None)
  Receive Date: 20110530
  Receipt Date: 20110521
  Transmission Date: 20111010
  Serious: Yes (Death, Other)
  Sender: FDA-Public Use
  Company Number: PHHY2011IT44670

PATIENT
  Age: 62 Year
  Sex: Male

DRUGS (4)
  1. ZOLEDRONIC ACID [Suspect]
  2. SUNITINIB MALATE [Concomitant]
  3. IMATINIB MESYLATE [Suspect]
     Indication: GASTROINTESTINAL STROMAL TUMOUR
     Dosage: 400 MG, DAILY
  4. RADIOTHERAPY [Concomitant]
     Indication: SPINAL DISORDER

REACTIONS (5)
  - PULMONARY OEDEMA [None]
  - RENAL FAILURE ACUTE [None]
  - NEOPLASM MALIGNANT [None]
  - DISEASE PROGRESSION [None]
  - OSTEONECROSIS OF JAW [None]
